FAERS Safety Report 7553946-X (Version None)
Quarter: 2011Q2

REPORT INFORMATION
  Report Type: 
  Country: None (occurrence: None)
  Receive Date: 20110609
  Receipt Date: 20110519
  Transmission Date: 20111010
  Serious: Yes (Other)
  Sender: FDA-Public Use
  Company Number: 2011-00393

PATIENT
  Age: 36 Year
  Sex: Female
  Weight: 65.7716 kg

DRUGS (1)
  1. ZICAM COLD REMEDY RAPIDMELTS [Suspect]
     Indication: OROPHARYNGEAL PAIN
     Dosage: ONE DOSE
     Dates: start: 20110519

REACTIONS (3)
  - PHARYNGEAL OEDEMA [None]
  - DYSPHAGIA [None]
  - DYSPNOEA [None]
